FAERS Safety Report 26130941 (Version 1)
Quarter: 2025Q4

REPORT INFORMATION
  Report Type: Spontaneous
  Country: US (occurrence: US)
  Receive Date: 20251208
  Receipt Date: 20251208
  Transmission Date: 20260118
  Serious: Yes (Hospitalization, Other)
  Sender: Haleon PLC
  Company Number: US-HALEON-2277907

PATIENT
  Age: 31 Year
  Sex: Female

DRUGS (2)
  1. ACETAMINOPHEN [Suspect]
     Active Substance: ACETAMINOPHEN
     Indication: Product used for unknown indication
     Dosage: PAST TWO DAYS HAD TAKEN 20 TABLETS
  2. ACETAMINOPHEN [Suspect]
     Active Substance: ACETAMINOPHEN

REACTIONS (14)
  - Acute kidney injury [Recovering/Resolving]
  - Metabolic acidosis [Recovered/Resolved]
  - Pancreatitis necrotising [Unknown]
  - Vomiting [Unknown]
  - Decreased appetite [Unknown]
  - Tachycardia [Unknown]
  - Tachypnoea [Unknown]
  - Hypotension [Unknown]
  - Acidosis [Recovering/Resolving]
  - Overdose [Unknown]
  - Back pain [Unknown]
  - Illness [Unknown]
  - Kussmaul respiration [Unknown]
  - Pyroglutamic acidosis [Unknown]
